FAERS Safety Report 14682985 (Version 1)
Quarter: 2018Q1

REPORT INFORMATION
  Report Type: Spontaneous
  Country: SG (occurrence: SG)
  Receive Date: 20180327
  Receipt Date: 20180327
  Transmission Date: 20180509
  Serious: Yes (Other)
  Sender: FDA-Public Use
  Company Number: SG-LEO PHARMA-308119

PATIENT
  Age: 45 Year
  Sex: Female

DRUGS (1)
  1. PROTOPIC [Suspect]
     Active Substance: TACROLIMUS
     Indication: SKIN DISCOLOURATION
     Route: 061

REACTIONS (4)
  - Therapeutic product ineffective for unapproved indication [Unknown]
  - Product use in unapproved indication [Unknown]
  - Lymphoma [Unknown]
  - Breast cancer [Unknown]

NARRATIVE: CASE EVENT DATE: 201510
